FAERS Safety Report 6973697-X (Version None)
Quarter: 2010Q3

REPORT INFORMATION
  Report Type: 
  Country: None (occurrence: None)
  Receive Date: 20100907
  Receipt Date: 20100823
  Transmission Date: 20110219
  Serious: Yes (Hospitalization)
  Sender: FDA-Public Use
  Company Number: DSA_43824_2010

PATIENT
  Age: 74 Year
  Sex: Male

DRUGS (4)
  1. ENALAPRIL MALEATE AND HYDROCHLOROTHIAZIDE [Suspect]
     Indication: HYPERTENSION
     Dosage: DF ORAL
  2. CASODEX [Suspect]
     Indication: PROSTATE CANCER METASTATIC
     Dosage: DF
  3. METFORMIN HCL [Suspect]
     Indication: TYPE 2 DIABETES MELLITUS
     Dosage: DF ORAL
  4. ZOLADEX  /00732102/ [Concomitant]

REACTIONS (7)
  - DEHYDRATION [None]
  - DIARRHOEA [None]
  - HYPONATRAEMIA [None]
  - LUNG DISORDER [None]
  - RENAL FAILURE ACUTE [None]
  - SEPTIC SHOCK [None]
  - WEIGHT DECREASED [None]
